FAERS Safety Report 23848481 (Version 2)
Quarter: 2024Q3

REPORT INFORMATION
  Report Type: Report from Study
  Country: BR (occurrence: BR)
  Receive Date: 20240513
  Receipt Date: 20240826
  Transmission Date: 20241017
  Serious: No
  Sender: SANDOZ
  Company Number: BR-002147023-NVSC2021BR283916

PATIENT
  Sex: Female

DRUGS (1)
  1. OMNITROPE [Suspect]
     Active Substance: SOMATROPIN
     Indication: Product used for unknown indication
     Dosage: 15 MG,1,8MG 6X WEEK
     Route: 065
     Dates: start: 202004

REACTIONS (2)
  - Device issue [Unknown]
  - Incorrect dose administered [Unknown]
